FAERS Safety Report 23169361 (Version 1)
Quarter: 2023Q4

REPORT INFORMATION
  Report Type: Spontaneous
  Country: US (occurrence: US)
  Receive Date: 20231110
  Receipt Date: 20231110
  Transmission Date: 20240109
  Serious: No
  Sender: FDA-Public Use
  Company Number: US-BRISTOL-MYERS SQUIBB COMPANY-2023-159107

PATIENT
  Age: 69 Year
  Sex: Male

DRUGS (1)
  1. POMALYST [Suspect]
     Active Substance: POMALIDOMIDE
     Indication: Plasmacytoma
     Dosage: FREQ-TAKE 1 CAPSULE BY MOUTH DAILY IN THE MORNING. DO NOT EAT 2 HOURS BEFORE OR 2 HOURS AFTER
     Route: 048

REACTIONS (1)
  - Off label use [Unknown]
